FAERS Safety Report 14688761 (Version 3)
Quarter: 2018Q2

REPORT INFORMATION
  Report Type: Spontaneous
  Country: US (occurrence: US)
  Receive Date: 20180328
  Receipt Date: 20180518
  Transmission Date: 20180711
  Serious: No
  Sender: FDA-Public Use
  Company Number: US-PFIZER INC-2018126478

PATIENT
  Age: 64 Year
  Sex: Male

DRUGS (3)
  1. SUTENT [Suspect]
     Active Substance: SUNITINIB MALATE
     Indication: NEUROENDOCRINE CARCINOMA
     Dosage: 37.5 MG, DAILY
     Dates: start: 20180309
  2. SYNTHROID [Concomitant]
     Active Substance: LEVOTHYROXINE SODIUM
     Dosage: UNK
  3. LANREOTIDE [Concomitant]
     Active Substance: LANREOTIDE
     Dosage: UNK, MONTHLY

REACTIONS (8)
  - Rash macular [Unknown]
  - Feeling abnormal [Unknown]
  - Skin disorder [Unknown]
  - Dry skin [Unknown]
  - Asthenia [Not Recovered/Not Resolved]
  - Memory impairment [Unknown]
  - Pruritus [Recovered/Resolved]
  - Fatigue [Not Recovered/Not Resolved]

NARRATIVE: CASE EVENT DATE: 2018
